FAERS Safety Report 9311278 (Version 1)
Quarter: 2013Q2

REPORT INFORMATION
  Report Type: Spontaneous
  Country: CA (occurrence: CA)
  Receive Date: 20130528
  Receipt Date: 20130528
  Transmission Date: 20140414
  Serious: Yes (Hospitalization)
  Sender: FDA-Public Use
  Company Number: CA-JNJFOC-20130512918

PATIENT
  Age: 84 Year
  Sex: Male

DRUGS (4)
  1. MOTRIN IB [Suspect]
     Route: 048
  2. MOTRIN IB [Suspect]
     Indication: PRODUCT USED FOR UNKNOWN INDICATION
     Route: 048
  3. ASA [Concomitant]
     Route: 065
  4. ASPIRIN [Concomitant]
     Route: 065

REACTIONS (3)
  - Chest discomfort [Recovered/Resolved]
  - Chest pain [Recovered/Resolved]
  - Expired drug administered [Recovered/Resolved]
